FAERS Safety Report 7135308-2 (Version None)
Quarter: 2010Q4

REPORT INFORMATION
  Report Type: 
  Country: None (occurrence: None)
  Receive Date: 20101203
  Receipt Date: 20101122
  Transmission Date: 20110411
  Serious: Yes (Life-Threatening, Hospitalization)
  Sender: FDA-Public Use
  Company Number: B0685512A

PATIENT
  Sex: Female

DRUGS (10)
  1. AVANDAMET [Suspect]
     Dosage: 4MG TWICE PER DAY
     Route: 048
     Dates: end: 20100721
  2. CORTANCYL [Concomitant]
     Indication: RHEUMATOID ARTHRITIS
     Dosage: 8MG PER DAY
     Route: 048
     Dates: end: 20100721
  3. TRIATEC [Concomitant]
     Indication: HYPERTENSION
     Dosage: 5MG PER DAY
     Route: 048
     Dates: end: 20100721
  4. NOVATREX [Concomitant]
     Indication: RHEUMATOID ARTHRITIS
     Dosage: 2.5MG FOUR TIMES PER WEEK
     Route: 048
     Dates: end: 20100721
  5. CIFLOX [Concomitant]
     Dosage: 500MG TWICE PER DAY
     Route: 048
     Dates: start: 20100501
  6. PREVISCAN [Concomitant]
     Indication: THROMBOSIS
     Route: 048
     Dates: start: 20100501, end: 20100721
  7. CRESTOR [Concomitant]
     Dosage: 5MG PER DAY
     Route: 048
     Dates: end: 20100721
  8. TARDYFERON [Concomitant]
     Dosage: 1UNIT PER DAY
     Route: 048
     Dates: end: 20100721
  9. LEDERFOLINE [Concomitant]
     Route: 048
     Dates: end: 20100721
  10. VITAMINE B12 [Concomitant]
     Dosage: 1UNIT WEEKLY
     Route: 065
     Dates: end: 20100721

REACTIONS (9)
  - HAEMATURIA [None]
  - HYPOGLYCAEMIA [None]
  - HYPOTENSION [None]
  - HYPOTHERMIA [None]
  - LACTIC ACIDOSIS [None]
  - LOSS OF CONSCIOUSNESS [None]
  - MYDRIASIS [None]
  - OLIGURIA [None]
  - RENAL FAILURE ACUTE [None]
